FAERS Safety Report 12871653 (Version 3)
Quarter: 2017Q1

REPORT INFORMATION
  Report Type: Spontaneous
  Country: US (occurrence: US)
  Receive Date: 20161021
  Receipt Date: 20170222
  Transmission Date: 20170428
  Serious: Yes (Death, Other)
  Sender: FDA-Public Use
  Company Number: US-JNJFOC-20161010637

PATIENT

DRUGS (2)
  1. IBRUTINIB [Suspect]
     Active Substance: IBRUTINIB
     Indication: CHRONIC LYMPHOCYTIC LEUKAEMIA
     Route: 048
     Dates: start: 2010, end: 2015
  2. RITUXIMAB [Suspect]
     Active Substance: RITUXIMAB
     Indication: CHRONIC LYMPHOCYTIC LEUKAEMIA
     Route: 065

REACTIONS (14)
  - Cardiac failure [Fatal]
  - Gastrointestinal haemorrhage [Unknown]
  - Pulmonary haemorrhage [Fatal]
  - Septic shock [Fatal]
  - Ischaemic stroke [Unknown]
  - Subdural haemorrhage [Unknown]
  - Colon cancer [Fatal]
  - Pericardial haemorrhage [Unknown]
  - Supraventricular tachyarrhythmia [Unknown]
  - Atrial flutter [Unknown]
  - Infection [Fatal]
  - Subdural haematoma [Unknown]
  - Muscle haemorrhage [Unknown]
  - Atrial fibrillation [Unknown]
